FAERS Safety Report 12299712 (Version 1)
Quarter: 2016Q2

REPORT INFORMATION
  Report Type: Spontaneous
  Country: US (occurrence: None)
  Receive Date: 20160422
  Receipt Date: 20160422
  Transmission Date: 20160815
  Serious: Yes (Other)
  Sender: FDA-Public Use
  Company Number: None

PATIENT
  Age: 38 Year
  Weight: 85.28 kg

DRUGS (1)
  1. NUVIGIL [Suspect]
     Active Substance: ARMODAFINIL
     Indication: NARCOLEPSY
     Route: 048
     Dates: start: 20160323, end: 20160413

REACTIONS (7)
  - Irritability [None]
  - Chromaturia [None]
  - Headache [None]
  - Angioedema [None]
  - Mouth ulceration [None]
  - Dysgeusia [None]
  - Disturbance in attention [None]

NARRATIVE: CASE EVENT DATE: 20160413
